FAERS Safety Report 23941129 (Version 1)
Quarter: 2024Q2

REPORT INFORMATION
  Report Type: Spontaneous
  Country: FR (occurrence: FR)
  Receive Date: 20240605
  Receipt Date: 20240605
  Transmission Date: 20240715
  Serious: Yes (Life-Threatening, Hospitalization)
  Sender: FDA-Public Use
  Company Number: None

PATIENT
  Age: 81 Year
  Sex: Female
  Weight: 50 kg

DRUGS (10)
  1. SPIRONOLACTONE [Suspect]
     Active Substance: SPIRONOLACTONE
     Dosage: 12.5 MG, 1X/DAY
     Route: 048
     Dates: start: 20240406, end: 20240514
  2. LANSOPRAZOLE [Suspect]
     Active Substance: LANSOPRAZOLE
     Dosage: 15 MG, 1X/DAY
     Route: 048
     Dates: start: 20240406, end: 20240515
  3. RAMIPRIL [Suspect]
     Active Substance: RAMIPRIL
     Dosage: 1.25 MG, 1X/DAY
     Route: 048
     Dates: start: 20240417, end: 20240514
  4. FUROSEMIDE [Suspect]
     Active Substance: FUROSEMIDE
     Dosage: 40 MG, 1X/DAY
     Route: 048
     Dates: start: 20240405, end: 20240522
  5. ASPIRIN\CLOPIDOGREL [Suspect]
     Active Substance: ASPIRIN\CLOPIDOGREL
     Dosage: 1 DF, 1X/DAY
     Route: 048
     Dates: start: 20240406
  6. LETROZOLE [Suspect]
     Active Substance: LETROZOLE
     Indication: Breast cancer
     Dosage: 2.5 MG, 1X/DAY
     Route: 048
     Dates: start: 20240430, end: 20240514
  7. BISOPROLOL [Suspect]
     Active Substance: BISOPROLOL\BISOPROLOL FUMARATE
     Dosage: 1.25 MG, 1X/DAY
     Route: 048
     Dates: start: 20240411, end: 20240514
  8. ATORVASTATIN [Suspect]
     Active Substance: ATORVASTATIN
     Dosage: 40 MG, 1X/DAY
     Route: 048
     Dates: start: 20240406, end: 20240515
  9. JARDIANCE [Suspect]
     Active Substance: EMPAGLIFLOZIN
     Dosage: 10 MG, 1X/DAY
     Route: 048
     Dates: start: 20240406, end: 20240514
  10. OXAZEPAM [Suspect]
     Active Substance: OXAZEPAM
     Dosage: 10 MG, 1X/DAY
     Route: 048
     Dates: start: 20240417

REACTIONS (1)
  - Agranulocytosis [Recovering/Resolving]

NARRATIVE: CASE EVENT DATE: 20240514
